FAERS Safety Report 13739605 (Version 3)
Quarter: 2017Q3

REPORT INFORMATION
  Report Type: Report from Study
  Country: None (occurrence: ZA)
  Receive Date: 20170710
  Receipt Date: 20170731
  Transmission Date: 20171127
  Serious: Yes (Hospitalization)
  Sender: FDA-Public Use
  Company Number: ZA-ABBVIE-17K-143-2032967-00

PATIENT
  Age: 52 Year
  Sex: Female

DRUGS (1)
  1. HUMIRA [Suspect]
     Active Substance: ADALIMUMAB
     Indication: ANKYLOSING SPONDYLITIS
     Route: 058

REACTIONS (6)
  - Animal bite [Recovering/Resolving]
  - Limb injury [Unknown]
  - Bronchitis [Unknown]
  - Throat irritation [Unknown]
  - Wound complication [Unknown]
  - Chest discomfort [Unknown]

NARRATIVE: CASE EVENT DATE: 201707
